FAERS Safety Report 22393171 (Version 1)
Quarter: 2023Q2

REPORT INFORMATION
  Report Type: Other
  Country: ZA (occurrence: None)
  Receive Date: 20230601
  Receipt Date: 20230601
  Transmission Date: 20230721
  Serious: Yes (Other)
  Sender: FDA-Public Use
  Company Number: ZA-ROCHE-3356938

PATIENT
  Sex: Male

DRUGS (1)
  1. OCREVUS [Suspect]
     Active Substance: OCRELIZUMAB
     Indication: Relapsing-remitting multiple sclerosis
     Dosage: 600 MG EVERY 6 MONTHS THEREAFTER
     Route: 041
     Dates: start: 20210726

REACTIONS (5)
  - Cerebral ischaemia [Unknown]
  - Acute sinusitis [Unknown]
  - Paranasal sinus mucosal hypertrophy [Unknown]
  - Sinus disorder [Unknown]
  - Chronic sinusitis [Unknown]
